FAERS Safety Report 9099574 (Version 1)
Quarter: 2013Q1

REPORT INFORMATION
  Report Type: Spontaneous
  Country: DE (occurrence: DE)
  Receive Date: 20130214
  Receipt Date: 20130214
  Transmission Date: 20140127
  Serious: Yes (Other)
  Sender: FDA-Public Use
  Company Number: PHHY2013DE013894

PATIENT
  Age: 26 Year
  Sex: Male

DRUGS (7)
  1. CLOZAPINE [Suspect]
     Indication: SCHIZOPHRENIA, CATATONIC TYPE
     Dosage: 300 MG, UNK
  2. CLOZAPINE [Interacting]
     Dosage: 200 MG, UNK
  3. PERAZINE [Interacting]
     Dosage: 250 MG, UNK
  4. ZUCLOPENTHIXOL [Concomitant]
     Dosage: 125 MG, UNK
  5. LORAZEPAM [Concomitant]
     Dosage: 0.5 MG, UNK
  6. LORAZEPAM [Concomitant]
     Dosage: 1.5 MG, UNK
  7. PIRENZEPINE [Concomitant]
     Dosage: 50 MG, UNK

REACTIONS (3)
  - Drug interaction [Unknown]
  - Antipsychotic drug level increased [Unknown]
  - Agitation [Unknown]
